FAERS Safety Report 12825319 (Version 2)
Quarter: 2016Q4

REPORT INFORMATION
  Report Type: Spontaneous
  Country: US (occurrence: US)
  Receive Date: 20161006
  Receipt Date: 20161114
  Transmission Date: 20170207
  Serious: Yes (Death, Hospitalization, Other)
  Sender: FDA-Public Use
  Company Number: US-BELCHER PHARMACEUTICALS, LLC-2016VTS00124

PATIENT
  Age: 94 Year
  Sex: Male
  Weight: 56.69 kg

DRUGS (4)
  1. HYOSCYAMINE SULFATE SL [Suspect]
     Active Substance: HYOSCYAMINE SULFATE
     Indication: BLADDER DISORDER
     Dosage: UNK
     Route: 060
     Dates: start: 201604
  2. HYDROCHLOROTHIAZIDE. [Concomitant]
     Active Substance: HYDROCHLOROTHIAZIDE
     Dosage: 1 TABLETS, 1X/DAY
     Dates: start: 2004
  3. HYOSCYAMINE SULFATE SL [Suspect]
     Active Substance: HYOSCYAMINE SULFATE
     Indication: GASTRIC DISORDER
  4. METOPROLOL. [Concomitant]
     Active Substance: METOPROLOL
     Dosage: 1 TABLETS, 2X/DAY
     Dates: start: 2004

REACTIONS (15)
  - Acute myocardial infarction [None]
  - Hypotension [None]
  - Bladder cancer [Fatal]
  - Speech disorder [Not Recovered/Not Resolved]
  - Asthenia [Not Recovered/Not Resolved]
  - Hypoxia [None]
  - Penile haemorrhage [Not Recovered/Not Resolved]
  - Acute kidney injury [None]
  - Urinary bladder haemorrhage [None]
  - Catheter placement [Not Recovered/Not Resolved]
  - Catheter site haemorrhage [None]
  - Hypersomnia [Not Recovered/Not Resolved]
  - Agitation [None]
  - Mental disorder [None]
  - Pneumonia [None]

NARRATIVE: CASE EVENT DATE: 201604
